FAERS Safety Report 5189698-0 (Version None)
Quarter: 2006Q4

REPORT INFORMATION
  Report Type: 
  Country: None (occurrence: None)
  Receive Date: 20061215
  Receipt Date: 20061201
  Transmission Date: 20070319
  Serious: Yes (Death)
  Sender: FDA-Public Use
  Company Number: 200612IM000667

PATIENT
  Age: 62 Year
  Sex: Male

DRUGS (2)
  1. INTERFERON GAMMA -1B [Suspect]
     Indication: ADULT T-CELL LYMPHOMA/LEUKAEMIA
     Dosage: 1000000 IU, QD, INTRAMUSCULAR
     Route: 030
     Dates: end: 20030401
  2. INTERFERON GAMMA -1B [Suspect]
     Indication: ADULT T-CELL LYMPHOMA/LEUKAEMIA
     Dosage: 1000000 IU, QD, INTRAMUSCULAR
     Route: 030
     Dates: start: 20010101

REACTIONS (8)
  - ANAPLASTIC LARGE CELL LYMPHOMA T- AND NULL-CELL TYPES [None]
  - CACHEXIA [None]
  - DIFFERENTIAL WHITE BLOOD CELL COUNT ABNORMAL [None]
  - DISEASE RECURRENCE [None]
  - LYMPHADENOPATHY [None]
  - PYREXIA [None]
  - STEM CELL TRANSPLANT [None]
  - WHITE BLOOD CELL COUNT DECREASED [None]
